FAERS Safety Report 8081118-1 (Version None)
Quarter: 2012Q1

REPORT INFORMATION
  Report Type: 
  Country: None (occurrence: None)
  Receive Date: 20120130
  Receipt Date: 20120125
  Transmission Date: 20120608
  Serious: Yes (Hospitalization)
  Sender: FDA-Public Use
  Company Number: US-GLAXOSMITHKLINE-A0871997A

PATIENT
  Age: 52 Year
  Sex: Male
  Weight: 82.7 kg

DRUGS (6)
  1. METFFORMIN HYDROCHLORIDE [Concomitant]
  2. AVANDIA [Suspect]
     Indication: DIABETES MELLITUS
     Dosage: 8MG TWICE PER DAY
     Route: 048
     Dates: start: 20010101, end: 20050101
  3. COZAAR [Concomitant]
  4. LESCOL [Concomitant]
  5. INSULIN [Concomitant]
  6. HYDROCHLOROTHIAZIDE [Concomitant]

REACTIONS (1)
  - EMBOLIC STROKE [None]
